FAERS Safety Report 12119486 (Version 2)
Quarter: 2018Q1

REPORT INFORMATION
  Report Type: Spontaneous
  Country: US (occurrence: US)
  Receive Date: 20160226
  Receipt Date: 20180314
  Transmission Date: 20180508
  Serious: Yes (Other)
  Sender: FDA-Public Use
  Company Number: US-PFIZER INC-2016110302

PATIENT
  Age: 15 Year
  Sex: Female
  Weight: 54 kg

DRUGS (2)
  1. ADVIL PM [Suspect]
     Active Substance: DIPHENHYDRAMINE CITRATE\IBUPROFEN
     Dosage: 2 DF, SINGLE
  2. ADVIL [Suspect]
     Active Substance: IBUPROFEN
     Dosage: UNK

REACTIONS (11)
  - Confusional state [Unknown]
  - Incoherent [Unknown]
  - Loss of consciousness [Recovering/Resolving]
  - Wrong drug administered [Unknown]
  - Accidental exposure to product by child [Unknown]
  - Product name confusion [Unknown]
  - Drug administered to patient of inappropriate age [Unknown]
  - Lethargy [Unknown]
  - Dysarthria [Unknown]
  - Grip strength decreased [Unknown]
  - Gait disturbance [Unknown]
